FAERS Safety Report 16798519 (Version 1)
Quarter: 2019Q3

REPORT INFORMATION
  Report Type: Spontaneous
  Country: US (occurrence: US)
  Receive Date: 20190722
  Receipt Date: 20190722
  Transmission Date: 20191005
  Serious: No
  Sender: FDA-Public Use
  Company Number: None

PATIENT
  Age: 78 Year
  Sex: Male
  Weight: 117.93 kg

DRUGS (6)
  1. FISH OIL [Concomitant]
     Active Substance: FISH OIL
  2. PROBIOTIC [Concomitant]
     Active Substance: PROBIOTICS NOS
  3. MULTI VITS [Concomitant]
     Active Substance: VITAMINS
  4. LOSARTAN. [Concomitant]
     Active Substance: LOSARTAN
  5. CARVEDILOL. [Concomitant]
     Active Substance: CARVEDILOL
  6. GABAPENTIN 300 MG CAPS [Suspect]
     Active Substance: GABAPENTIN
     Indication: NEURALGIA
     Dosage: ?          QUANTITY:90 DF DOSAGE FORM;OTHER FREQUENCY:ONCE QD AT BETIME;?
     Route: 048
     Dates: start: 20190625, end: 20190712

REACTIONS (5)
  - Product substitution issue [None]
  - Drug ineffective [None]
  - Burning sensation [None]
  - Swelling [None]
  - Suspected product quality issue [None]

NARRATIVE: CASE EVENT DATE: 20190625
